FAERS Safety Report 7665755 (Version 2)
Quarter: 2013Q3

REPORT INFORMATION
  Report Type: Spontaneous
  Country: US (occurrence: US)
  Receive Date: 20101112
  Receipt Date: 20130820
  Transmission Date: 20140515
  Serious: Yes (Hospitalization, Other)
  Sender: FDA-Public Use
  Company Number: US-PFIZER INC-2010139836

PATIENT
  Age: 79 Year
  Sex: Male

DRUGS (22)
  1. DILANTIN KAPSEAL [Suspect]
     Indication: CONVULSION PROPHYLAXIS
     Dosage: 300 MG (100MG CAPSULES, 3 CAPSULES), 1X/DAY (EVERY NIGHT AT BED TIME)
     Route: 048
     Dates: start: 20081226, end: 20090217
  2. HYDROCODONE/ APAP [Concomitant]
     Dosage: 500 MG, UNK
     Dates: start: 20081218
  3. DILTIAZEM [Concomitant]
     Dosage: 120 MG, 1X/DAY
     Route: 048
     Dates: start: 20081218
  4. PHENYTOIN [Concomitant]
     Dosage: 100 MG, 3X/DAY (EVERY 8 HOURS)
     Route: 042
     Dates: start: 20081226, end: 20090120
  5. PHENYTOIN [Concomitant]
     Dosage: 300 MG, UNK
     Route: 048
     Dates: end: 20090217
  6. NYSTATIN [Concomitant]
     Indication: ORAL CANDIDIASIS
     Dosage: UNK
     Route: 048
     Dates: start: 20090130
  7. ANCEF [Concomitant]
     Dosage: 1 G, 4X/DAY (EVERY SIX HOURS )
     Route: 042
     Dates: start: 20081226
  8. CEREBYX [Concomitant]
     Dosage: 1 G, 1X/DAY
     Route: 042
     Dates: start: 20081226
  9. LASIX [Concomitant]
     Dosage: 10 MG, 1X/DAY
     Route: 042
     Dates: start: 20081226
  10. FUROSEMIDE [Concomitant]
     Dosage: 10 MG, 1X/DAY
     Route: 042
     Dates: start: 20081226
  11. PROTONIX [Concomitant]
     Dosage: 40 MG, 1X/DAY
     Route: 042
     Dates: start: 20081226
  12. TYLENOL [Concomitant]
     Dosage: 650 MG, EVERY 4 HRS (325MG 2 TABLETS) AS NEEDED
     Route: 048
     Dates: start: 20081226
  13. MORPHIN [Concomitant]
     Indication: PAIN
     Dosage: 2 MG, EVERY TWO HOURS
     Route: 042
     Dates: start: 20081226
  14. DOPAMINE [Concomitant]
     Dosage: 400MG/250ML
     Route: 042
     Dates: start: 20081226
  15. ATIVAN [Concomitant]
     Indication: AGITATION
     Dosage: 0.5 MG, AS NEEDED (EVERY TWO HOURS)
     Route: 042
     Dates: start: 20081227, end: 20090120
  16. DEXMEDETOMIDINE [Concomitant]
     Dosage: 400MCG/ 4ML
     Dates: start: 20081227
  17. COMBIVENT [Concomitant]
     Dosage: 8 DF (PUFFS), 3X/DAY
     Dates: start: 20081227
  18. NOVOLOG [Concomitant]
     Dosage: 1 DF, 4X/DAY (EVERY SIX HOURS )
     Route: 058
     Dates: start: 20081227, end: 20090120
  19. KLOR-CON [Concomitant]
     Dosage: 40 MEQ, 1X/DAY
     Dates: start: 20081228
  20. DUONEB [Concomitant]
     Indication: DYSPNOEA
     Dosage: 3 ML, 3X/DAY (NEBULIZATION)
     Dates: start: 20081228
  21. UNASYN [Concomitant]
     Dosage: 3 MG, 4X/DAY (EVERY SIX HOURS )
     Route: 042
     Dates: start: 20081230
  22. LORTAB [Concomitant]
     Indication: PAIN
     Dosage: 1 DF (5/200MG TABLET), EVERY 4 HRS
     Route: 048
     Dates: start: 20081231

REACTIONS (1)
  - Stevens-Johnson syndrome [Recovering/Resolving]
